FAERS Safety Report 18216985 (Version 4)
Quarter: 2020Q4

REPORT INFORMATION
  Report Type: Spontaneous
  Country: US (occurrence: US)
  Receive Date: 20200901
  Receipt Date: 20201230
  Transmission Date: 20210113
  Serious: Yes (Other)
  Sender: FDA-Public Use
  Company Number: US-KAMADA LIMITED-2020US004621

PATIENT

DRUGS (44)
  1. HEPARIN [Concomitant]
     Active Substance: HEPARIN SODIUM
     Dosage: UNKNOWN
     Route: 065
  2. DULOXETINE HCL [Concomitant]
     Active Substance: DULOXETINE HYDROCHLORIDE
     Dosage: UNKNOWN
     Route: 065
  3. OXYGEN. [Concomitant]
     Active Substance: OXYGEN
     Dosage: UNKNOWN
     Route: 065
  4. AZITHROMYCIN ANHYDROUS. [Concomitant]
     Active Substance: AZITHROMYCIN ANHYDROUS
     Dosage: UNKNOWN
     Route: 065
  5. XANAX [Concomitant]
     Active Substance: ALPRAZOLAM
     Dosage: UNKNOWN
     Route: 065
  6. FIORINAL [Concomitant]
     Active Substance: ASPIRIN\BUTALBITAL\CAFFEINE
     Dosage: UNKNOWN
     Route: 065
  7. LASIX [Concomitant]
     Active Substance: FUROSEMIDE
     Dosage: UNKNOWN
     Route: 065
  8. DICYCLOMINE [Concomitant]
     Active Substance: DICYCLOMINE HYDROCHLORIDE
     Dosage: UNKNOWN
     Route: 065
  9. VITAMIN D [VITAMIN D NOS] [Concomitant]
     Active Substance: VITAMIN D NOS
     Dosage: UNKNOWN
     Route: 065
  10. LEVOTHYROXINE SODIUM. [Concomitant]
     Active Substance: LEVOTHYROXINE SODIUM
     Dosage: UNKNOWN
     Route: 065
  11. RANEXA [Concomitant]
     Active Substance: RANOLAZINE
     Dosage: UNKNOWN
     Route: 065
  12. SPIRULINA [SPIRULINA SPP.] [Concomitant]
     Dosage: UNKNOWN
     Route: 065
  13. EPINEPHRINE. [Concomitant]
     Active Substance: EPINEPHRINE
     Dosage: AUTO-INJECTOR
     Route: 065
  14. MULTIVITAMINS [VITAMINS NOS] [Concomitant]
     Active Substance: VITAMINS
     Dosage: UNKNOWN
     Route: 065
  15. HUMULIN R [Concomitant]
     Active Substance: INSULIN HUMAN
     Dosage: UNKNOWN
     Route: 065
  16. CRANBERRY [VACCINIUM MACROCARPON] [Concomitant]
     Active Substance: CRANBERRY
     Dosage: UNKNOWN
     Route: 065
  17. KEPPRA [Concomitant]
     Active Substance: LEVETIRACETAM
     Dosage: UNKNOWN
     Route: 065
  18. DILAUDID [Concomitant]
     Active Substance: HYDROMORPHONE HYDROCHLORIDE
     Dosage: UNKNOWN
     Route: 065
  19. LOVAZA [Concomitant]
     Active Substance: OMEGA-3-ACID ETHYL ESTERS
     Dosage: UNKNOWN
     Route: 065
  20. COLCHICINE. [Concomitant]
     Active Substance: COLCHICINE
     Dosage: UNKNOWN
     Route: 065
  21. AJOVY [Concomitant]
     Active Substance: FREMANEZUMAB-VFRM
     Dosage: UNKNOWN
     Route: 065
  22. PROTONIX [Concomitant]
     Active Substance: PANTOPRAZOLE SODIUM
     Dosage: UNKNOWN
     Route: 065
  23. ACYCLOVIR [ACICLOVIR] [Concomitant]
     Active Substance: ACYCLOVIR
     Dosage: UNKNOWN
     Route: 065
  24. GUAIFENESIN DM [Concomitant]
     Active Substance: DEXTROMETHORPHAN\DEXTROMETHORPHAN HYDROBROMIDE\GUAIFENESIN
     Dosage: UNKNOWN
     Route: 065
  25. MACROBID [Concomitant]
     Active Substance: NITROFURANTOIN\NITROFURANTOIN MONOHYDRATE
     Dosage: UNKNOWN
     Route: 065
  26. MELATONIN [Concomitant]
     Active Substance: MELATONIN
     Dosage: UNKNOWN
     Route: 065
  27. CIPRO [Concomitant]
     Active Substance: CIPROFLOXACIN HYDROCHLORIDE
     Dosage: UNKNOWN
     Route: 065
  28. CREON [Concomitant]
     Active Substance: PANCRELIPASE AMYLASE\PANCRELIPASE LIPASE\PANCRELIPASE PROTEASE
     Dosage: UNKNOWN
     Route: 065
  29. ZOFRAN [Concomitant]
     Active Substance: ONDANSETRON HYDROCHLORIDE
     Dosage: UNKNOWN
     Route: 065
  30. NITROLINGUAL [Concomitant]
     Active Substance: NITROGLYCERIN
     Dosage: UNKNOWN
     Route: 065
  31. LIDOCAINE. [Concomitant]
     Active Substance: LIDOCAINE
     Dosage: UNKNOWN
     Route: 065
  32. NOVOLOG [Concomitant]
     Active Substance: INSULIN ASPART
     Dosage: UNKNOWN
     Route: 065
  33. LEVAQUIN [Concomitant]
     Active Substance: LEVOFLOXACIN
     Dosage: UNKNOWN
     Route: 065
  34. CEFTRIAXONE. [Concomitant]
     Active Substance: CEFTRIAXONE
     Dosage: UNKNOWN
     Route: 065
  35. WELLBUTRIN [Concomitant]
     Active Substance: BUPROPION HYDROCHLORIDE
     Dosage: UNK, XL (EXTENDED RELEASE)
     Route: 065
  36. SINGULAIR [Concomitant]
     Active Substance: MONTELUKAST SODIUM
     Dosage: UNKNOWN
     Route: 065
  37. TOPAMAX [Concomitant]
     Active Substance: TOPIRAMATE
     Dosage: UNKNOWN
     Route: 065
  38. COLACE [Concomitant]
     Active Substance: DOCUSATE SODIUM
     Dosage: UNKNOWN
     Route: 065
  39. GUMMY CAL ADULTS [Concomitant]
     Dosage: UNK, CHEWABLE TABLET
     Route: 065
  40. GLASSIA [Suspect]
     Active Substance: .ALPHA.1-PROTEINASE INHIBITOR HUMAN
     Indication: ALPHA-1 ANTITRYPSIN DEFICIENCY
     Dosage: 60 MG/KG (TOTAL DOSE: 4750 MG), 1/WEEK
     Route: 042
     Dates: start: 20151216
  41. SODIUM CHLORIDE. [Concomitant]
     Active Substance: SODIUM CHLORIDE
     Dosage: UNKNOWN
     Route: 065
  42. ZITHROMAX [Concomitant]
     Active Substance: AZITHROMYCIN DIHYDRATE
     Dosage: UNKNOWN
     Route: 065
  43. ECHINACEA HERB [ECHINACEA SPP.] [Concomitant]
     Dosage: UNKNOWN
     Route: 065
  44. ROBAXIN [Concomitant]
     Active Substance: METHOCARBAMOL
     Dosage: UNKNOWN
     Route: 065

REACTIONS (13)
  - Sepsis [Unknown]
  - Fungal infection [Not Recovered/Not Resolved]
  - Weight decreased [Unknown]
  - Migraine [Unknown]
  - Catheter site swelling [Unknown]
  - Retching [Unknown]
  - Kidney infection [Not Recovered/Not Resolved]
  - Illness [Unknown]
  - Urinary tract infection [Not Recovered/Not Resolved]
  - Syncope [Unknown]
  - Dysphagia [Unknown]
  - Constipation [Unknown]
  - Sinusitis [Unknown]
